FAERS Safety Report 12193063 (Version 2)
Quarter: 2016Q2

REPORT INFORMATION
  Report Type: Spontaneous
  Country: BE (occurrence: BE)
  Receive Date: 20160318
  Receipt Date: 20160525
  Transmission Date: 20160815
  Serious: Yes (Other)
  Sender: FDA-Public Use
  Company Number: BE-ABBVIE-16K-013-1584112-00

PATIENT
  Age: 31 Year
  Sex: Male

DRUGS (1)
  1. HUMIRA [Suspect]
     Active Substance: ADALIMUMAB
     Indication: CROHN^S DISEASE
     Route: 058
     Dates: start: 20150925, end: 20160219

REACTIONS (11)
  - Neurosarcoidosis [Recovering/Resolving]
  - Hypoaesthesia [Unknown]
  - Memory impairment [Unknown]
  - Vision blurred [Unknown]
  - Exercise tolerance decreased [Unknown]
  - Dyspnoea exertional [Recovering/Resolving]
  - Vertigo [Unknown]
  - Aphasia [Unknown]
  - Headache [Unknown]
  - Dyspnoea [Unknown]
  - Muscular weakness [Unknown]

NARRATIVE: CASE EVENT DATE: 201601
